FAERS Safety Report 18905664 (Version 2)
Quarter: 2021Q1

REPORT INFORMATION
  Report Type: Spontaneous
  Country: GB (occurrence: GB)
  Receive Date: 20210217
  Receipt Date: 20210301
  Transmission Date: 20210420
  Serious: Yes (Hospitalization)
  Sender: FDA-Public Use
  Company Number: GB-MYLANLABS-2021M1009190

PATIENT
  Age: 55 Year
  Sex: Male

DRUGS (1)
  1. CLOZARIL [Suspect]
     Active Substance: CLOZAPINE
     Indication: SCHIZOPHRENIA
     Dosage: 12.5 MILLIGRAM
     Route: 048
     Dates: start: 20191216

REACTIONS (6)
  - Hospitalisation [Unknown]
  - Glomerular filtration rate decreased [Recovered/Resolved]
  - Neutrophil count increased [Recovered/Resolved]
  - Blood urea increased [Recovered/Resolved]
  - White blood cell count increased [Recovered/Resolved]
  - High density lipoprotein decreased [Recovering/Resolving]

NARRATIVE: CASE EVENT DATE: 20210208
